FAERS Safety Report 23706857 (Version 1)
Quarter: 2024Q2

REPORT INFORMATION
  Report Type: Spontaneous
  Country: US (occurrence: None)
  Receive Date: 20240404
  Receipt Date: 20240404
  Transmission Date: 20240715
  Serious: Yes (Other)
  Sender: FDA-Public Use
  Company Number: US-Axsome Therapeutics, Inc.-AXS202403-000339

PATIENT
  Age: 69 Year
  Sex: Female

DRUGS (1)
  1. SUNOSI [Suspect]
     Active Substance: SOLRIAMFETOL
     Indication: Obstructive sleep apnoea syndrome
     Route: 048

REACTIONS (1)
  - Tardive dyskinesia [Unknown]
